FAERS Safety Report 10220108 (Version 1)
Quarter: 2014Q2

REPORT INFORMATION
  Report Type: Report from Study
  Country: FR (occurrence: FR)
  Receive Date: 20140605
  Receipt Date: 20140605
  Transmission Date: 20141212
  Serious: Yes (Hospitalization)
  Sender: FDA-Public Use
  Company Number: FR-DSJP-DSE-2014-109598

PATIENT
  Sex: 0

DRUGS (1)
  1. ALTEIS 10 MG [Suspect]
     Indication: HYPERTENSION
     Dosage: 10 MG, QD
     Route: 048
     Dates: end: 20131219

REACTIONS (12)
  - Gastrointestinal disorder [Unknown]
  - Renal failure [Unknown]
  - Colitis microscopic [Unknown]
  - Diarrhoea [None]
  - Weight decreased [None]
  - Hypokalaemia [None]
  - Abdominal pain [None]
  - Dehydration [None]
  - Hyperosmolar state [None]
  - Coma [None]
  - Dialysis [None]
  - Vitamin D deficiency [None]
